FAERS Safety Report 6688941-6 (Version None)
Quarter: 2010Q2

REPORT INFORMATION
  Report Type: 
  Country: None (occurrence: None)
  Receive Date: 20100420
  Receipt Date: 20100407
  Transmission Date: 20101027
  Serious: Yes (Hospitalization)
  Sender: FDA-Public Use
  Company Number: US-ELI_LILLY_AND_COMPANY-US201004002903

PATIENT
  Age: 65 Year
  Sex: Female

DRUGS (3)
  1. EFFIENT [Suspect]
     Indication: PERCUTANEOUS CORONARY INTERVENTION
     Dosage: 60 MG, UNK
     Dates: start: 20100101
  2. EFFIENT [Suspect]
     Dosage: 10 MG, DAILY (1/D)
     Dates: start: 20100101
  3. PLAVIX [Concomitant]
     Dosage: 600 MG, UNK

REACTIONS (2)
  - CORONARY ARTERY DISEASE [None]
  - DRUG DOSE OMISSION [None]
